FAERS Safety Report 8599304-0 (Version None)
Quarter: 2012Q3

REPORT INFORMATION
  Report Type: 
  Country: None (occurrence: None)
  Receive Date: 20120816
  Receipt Date: 20120720
  Transmission Date: 20120928
  Serious: No
  Sender: FDA-Public Use
  Company Number: US-AMGEN-USASP2012038180

PATIENT
  Age: 53 Year
  Sex: Female
  Weight: 77.098 kg

DRUGS (9)
  1. NEUPOGEN [Suspect]
     Indication: PRODUCT USED FOR UNKNOWN INDICATION
     Dosage: 300 MUG, UNK
  2. TRIAMTERENE AND HYDROCHLOROTHIAZIDE [Concomitant]
     Dosage: UNK
  3. PEPCID AC [Concomitant]
     Dosage: 10 MG, UNK
  4. CHROMIUM CHLORIDE [Concomitant]
     Dosage: 1 MG, UNK
  5. DROSPIRENONE AND ETHINYL ESTRADIOL [Concomitant]
     Dosage: UNK
  6. FLAXSEED OIL [Concomitant]
     Dosage: UNK
  7. VITAMIN D [Concomitant]
     Dosage: 400 IU, UNK
  8. MINERALS NOS [Concomitant]
     Dosage: UNK
  9. ENBREL [Suspect]
     Indication: PRODUCT USED FOR UNKNOWN INDICATION
     Dosage: 25 MG, 2 TIMES/WK
     Route: 058

REACTIONS (2)
  - CONDITION AGGRAVATED [None]
  - DRUG INEFFECTIVE [None]
